FAERS Safety Report 7481723-7 (Version None)
Quarter: 2011Q2

REPORT INFORMATION
  Report Type: 
  Country: None (occurrence: None)
  Receive Date: 20110506
  Receipt Date: 20110425
  Transmission Date: 20111010
  Serious: Yes (Hospitalization, Disabling, Other)
  Sender: FDA-Public Use
  Company Number: 2010MA001018

PATIENT
  Sex: Male
  Weight: 99.7913 kg

DRUGS (24)
  1. ELAVIL [Concomitant]
  2. PRILOSEC [Concomitant]
  3. ZANTAC [Concomitant]
  4. METOCLOPRAMIDE [Suspect]
     Dates: start: 20070101, end: 20090101
  5. LORCET-HD [Concomitant]
  6. NEURONTIN [Concomitant]
  7. ROXICODONE [Concomitant]
  8. AMBIEN [Concomitant]
  9. XANAX [Concomitant]
  10. SIMVASTATIN [Concomitant]
  11. HYDROCODONE [Concomitant]
  12. PROPOXYPHENE HYDROCHLORIDE [Concomitant]
  13. TRAZODONE HCL [Concomitant]
  14. OXYCONTIN [Concomitant]
  15. ZOCOR [Concomitant]
  16. GEMFIBROZIL [Concomitant]
  17. DONNATAL [Concomitant]
  18. PERCOCET [Concomitant]
  19. BENTYL [Concomitant]
  20. NEXIUM [Concomitant]
  21. DIAZEPAM [Concomitant]
  22. PREVPAC [Concomitant]
  23. ZYPREXA [Concomitant]
  24. CLONIDINE [Concomitant]

REACTIONS (14)
  - FALL [None]
  - SOMNOLENCE [None]
  - PRESYNCOPE [None]
  - BLOOD ALCOHOL INCREASED [None]
  - FAMILY STRESS [None]
  - TARDIVE DYSKINESIA [None]
  - TOOTH EXTRACTION [None]
  - BALANCE DISORDER [None]
  - JOINT INJURY [None]
  - QUALITY OF LIFE DECREASED [None]
  - INCORRECT DRUG ADMINISTRATION DURATION [None]
  - ANXIETY [None]
  - INJURY [None]
  - SUBSTANCE ABUSE [None]
